FAERS Safety Report 19731339 (Version 1)
Quarter: 2021Q3

REPORT INFORMATION
  Report Type: Spontaneous
  Country: US (occurrence: US)
  Receive Date: 20210819
  Receipt Date: 20210819
  Transmission Date: 20211014
  Serious: Yes (Other)
  Sender: FDA-Public Use
  Company Number: None

PATIENT
  Sex: Female

DRUGS (1)
  1. ADEFOVIR DIPIVOXIL 10MG APOTEX [Suspect]
     Active Substance: ADEFOVIR DIPIVOXIL
     Route: 048

REACTIONS (2)
  - Heart rate irregular [None]
  - Respiration abnormal [None]
